FAERS Safety Report 21270107 (Version 1)
Quarter: 2022Q3

REPORT INFORMATION
  Report Type: Spontaneous
  Country: US (occurrence: US)
  Receive Date: 20220830
  Receipt Date: 20220830
  Transmission Date: 20221027
  Serious: No
  Sender: FDA-Public Use
  Company Number: US-GALDERMA-US2022010702

PATIENT

DRUGS (1)
  1. DIFFERIN GEL [Suspect]
     Active Substance: ADAPALENE
     Indication: Product used for unknown indication
     Dosage: 1 DOSAGE FORM, USED FOR 2 DAYS SHORT OF MONTH
     Route: 061

REACTIONS (4)
  - Acne [Unknown]
  - Pruritus [Unknown]
  - Acne cystic [Unknown]
  - Scab [Unknown]
